FAERS Safety Report 20466695 (Version 1)
Quarter: 2022Q1

REPORT INFORMATION
  Report Type: Spontaneous
  Country: SA (occurrence: SA)
  Receive Date: 20220213
  Receipt Date: 20220213
  Transmission Date: 20220423
  Serious: Yes (Other)
  Sender: FDA-Public Use
  Company Number: SA-BAUSCH-BL-2022-003729

PATIENT
  Age: 47 Year
  Sex: Male

DRUGS (8)
  1. GENTAMICIN [Suspect]
     Active Substance: GENTAMICIN
     Indication: Alpha haemolytic streptococcal infection
     Route: 061
  2. GENTAMICIN [Suspect]
     Active Substance: GENTAMICIN
     Indication: Streptococcal infection
  3. PREDNISOLONE ACETATE [Suspect]
     Active Substance: PREDNISOLONE ACETATE
     Indication: Herpes virus infection
     Route: 061
     Dates: start: 2018
  4. PREDNISOLONE ACETATE [Suspect]
     Active Substance: PREDNISOLONE ACETATE
     Route: 061
  5. MOXIFLOXACIN [Suspect]
     Active Substance: MOXIFLOXACIN
     Indication: Herpes virus infection
     Route: 061
     Dates: start: 2018
  6. MOXIFLOXACIN [Suspect]
     Active Substance: MOXIFLOXACIN
     Route: 061
     Dates: start: 2018
  7. VALACYCLOVIR [Concomitant]
     Active Substance: VALACYCLOVIR HYDROCHLORIDE
     Indication: Herpes virus infection
     Route: 048
     Dates: start: 2018
  8. DOXYCYCLINE [Concomitant]
     Active Substance: DOXYCYCLINE
     Indication: Product used for unknown indication
     Route: 048
     Dates: start: 2018

REACTIONS (3)
  - Alpha haemolytic streptococcal infection [Unknown]
  - Eye infection bacterial [Unknown]
  - Therapy non-responder [Unknown]

NARRATIVE: CASE EVENT DATE: 20180101
